FAERS Safety Report 11912551 (Version 5)
Quarter: 2016Q2

REPORT INFORMATION
  Report Type: Spontaneous
  Country: JP (occurrence: JP)
  Receive Date: 20160113
  Receipt Date: 20160523
  Transmission Date: 20160815
  Serious: Yes (Death, Other)
  Sender: FDA-Public Use
  Company Number: JP-BRISTOL-MYERS SQUIBB COMPANY-BMS-2016-000829

PATIENT
  Age: 73 Year
  Sex: Male
  Weight: 70 kg

DRUGS (17)
  1. MINOCYCLINE                        /00232402/ [Concomitant]
     Indication: PROPHYLAXIS
     Dosage: 100 MG, TID
     Route: 048
     Dates: start: 20151125, end: 20151224
  2. LANSOPRAZOLE. [Concomitant]
     Active Substance: LANSOPRAZOLE
     Indication: GASTROOESOPHAGEAL REFLUX DISEASE
     Dosage: 15 MG, QD
     Route: 048
     Dates: start: 20151125, end: 20160101
  3. ERBITUX [Suspect]
     Active Substance: CETUXIMAB
     Dosage: 447.5 MG, WEEKLY (1/W)
     Dates: start: 20151203, end: 20151217
  4. EXFORGE [Concomitant]
     Active Substance: AMLODIPINE BESYLATE\VALSARTAN
     Indication: HYPERTENSION
     Dosage: 1 DF, QD
     Route: 048
     Dates: end: 20151214
  5. ERBITUX [Suspect]
     Active Substance: CETUXIMAB
     Indication: HYPOPHARYNGEAL CANCER STAGE IV
     Dosage: 716 MG, WEEKLY (1/W)
     Route: 065
     Dates: start: 20151126, end: 20151126
  6. DEXART [Concomitant]
     Active Substance: DEXAMETHASONE SODIUM PHOSPHATE
     Dosage: 10 MG, WEEKLY (1/W)
     Dates: start: 20151126, end: 20151217
  7. DEXART [Concomitant]
     Active Substance: DEXAMETHASONE SODIUM PHOSPHATE
     Indication: PREMEDICATION
     Dosage: UNK, WEEKLY (1/W)
     Route: 042
  8. CANDESARTAN CILEXETIL. [Concomitant]
     Active Substance: CANDESARTAN CILEXETIL
     Indication: HYPERTENSION
     Dosage: 8 MG, QD
     Route: 048
     Dates: start: 20151216, end: 20160101
  9. GLACTIV [Concomitant]
     Active Substance: SITAGLIPTIN
     Indication: PRODUCT USED FOR UNKNOWN INDICATION
     Dosage: 50 MG, QD
     Route: 048
     Dates: start: 20151216, end: 20160101
  10. AMLODIPINE/ATORVASTATIN KRKA [Concomitant]
     Indication: HYPERTENSION
     Dosage: 5 MG, QD
     Route: 048
     Dates: start: 20151216, end: 20160101
  11. POLARAMINE [Concomitant]
     Active Substance: DEXCHLORPHENIRAMINE MALEATE
     Indication: PREMEDICATION
     Dosage: 5 MG, WEEKLY (1/W)
     Dates: start: 20151126, end: 20151217
  12. JANUVIA [Concomitant]
     Active Substance: SITAGLIPTIN PHOSPHATE
     Indication: DIABETES MELLITUS
     Dosage: 50 MG, QD
     Route: 048
     Dates: end: 20151214
  13. FEBURIC [Concomitant]
     Active Substance: FEBUXOSTAT
     Indication: HYPERURICAEMIA
     Dosage: 20 MG, QD
     Route: 048
     Dates: end: 20160101
  14. JUZENTAIHOTO                       /07985601/ [Concomitant]
     Active Substance: HERBALS
     Indication: FATIGUE
     Dosage: 2.5 G, TID
     Route: 048
     Dates: start: 20151125, end: 20151224
  15. CELECOX [Concomitant]
     Active Substance: CELECOXIB
     Indication: PAIN
     Dosage: 100 MG, UNK
     Route: 048
     Dates: start: 20151117, end: 20151123
  16. CEPHARANTHINE [Concomitant]
     Active Substance: CEPHARANTHINE
     Indication: PROPHYLAXIS
     Dosage: 2 MG, TID
     Route: 048
     Dates: start: 20151125, end: 20151224
  17. ARGAMATE [Concomitant]
     Active Substance: CALCIUM POLYSTYRENE SULFONATE
     Indication: HYPERKALAEMIA
     Dosage: 25 G, BID
     Route: 048
     Dates: start: 20151124, end: 20151128

REACTIONS (2)
  - Pneumonia bacterial [Fatal]
  - Aspiration [Unknown]

NARRATIVE: CASE EVENT DATE: 20151224
